FAERS Safety Report 8028868-0 (Version None)
Quarter: 2012Q1

REPORT INFORMATION
  Report Type: 
  Country: None (occurrence: None)
  Receive Date: 20120106
  Receipt Date: 20120104
  Transmission Date: 20120608
  Serious: Yes (Death, Hospitalization)
  Sender: FDA-Public Use
  Company Number: US-GLAXOSMITHKLINE-A0949717A

PATIENT
  Age: 88 Year
  Sex: Female

DRUGS (12)
  1. PAXIL [Suspect]
     Dosage: 10MG UNKNOWN
     Route: 065
  2. PLAVIX [Concomitant]
  3. NAMENDA [Concomitant]
  4. EXELON [Concomitant]
  5. PROTONIX [Concomitant]
  6. LEVETIRACETAM [Concomitant]
  7. VESICARE [Concomitant]
  8. FENOFIBRATE [Concomitant]
  9. LANOXIN [Suspect]
     Indication: PRODUCT USED FOR UNKNOWN INDICATION
     Dosage: .125MG UNKNOWN
     Route: 048
     Dates: start: 20100512
  10. ALPRAZOLAM [Concomitant]
  11. POTASSIUM CHLORIDE [Concomitant]
  12. NORVASC [Concomitant]

REACTIONS (3)
  - DEATH [None]
  - FALL [None]
  - PNEUMONIA [None]
